FAERS Safety Report 4472288-2 (Version None)
Quarter: 2004Q4

REPORT INFORMATION
  Report Type: 
  Country: None (occurrence: None)
  Receive Date: 20041007
  Receipt Date: 20040924
  Transmission Date: 20050328
  Serious: Yes (Other)
  Sender: FDA-Public Use
  Company Number: 2004061154

PATIENT
  Age: 75 Year
  Sex: Male
  Weight: 83.9154 kg

DRUGS (6)
  1. LIPITOR [Suspect]
     Indication: BLOOD CHOLESTEROL INCREASED
     Dosage: 80 MG (80 MG, 1 IN 1 D), ORAL
     Route: 048
     Dates: start: 19970101
  2. METFORMIN HCL [Concomitant]
  3. ISOSORBIDE (ISOSORBIDE) [Concomitant]
  4. ASPIRIN [Concomitant]
  5. CELECOXIB (CELECOXIB) [Concomitant]
  6. TOCOPHEROL CONCENTRATE CAP [Concomitant]

REACTIONS (9)
  - ARTHRALGIA [None]
  - ARTHRITIS [None]
  - ARTHROPATHY [None]
  - BLOOD GLUCOSE INCREASED [None]
  - CHONDROPATHY [None]
  - DIABETES MELLITUS NON-INSULIN-DEPENDENT [None]
  - MUSCULOSKELETAL STIFFNESS [None]
  - MYALGIA [None]
  - SCIATICA [None]
